FAERS Safety Report 6589291-9 (Version None)
Quarter: 2010Q1

REPORT INFORMATION
  Report Type: 
  Country: None (occurrence: None)
  Receive Date: 20100218
  Receipt Date: 20100203
  Transmission Date: 20100710
  Serious: Yes (Hospitalization)
  Sender: FDA-Public Use
  Company Number: FR-JNJCH-2010002024

PATIENT
  Sex: Female

DRUGS (12)
  1. CETIRIZINE HYDROCHLORIDE [Suspect]
     Indication: DRUG USE FOR UNKNOWN INDICATION
     Dosage: TEXT:10MG, 10 MG
     Route: 048
     Dates: start: 20090904, end: 20091024
  2. SEGLOR [Suspect]
     Indication: DRUG USE FOR UNKNOWN INDICATION
     Dosage: TEXT:5 MG
     Route: 048
     Dates: start: 20091021, end: 20091024
  3. DAFLON [Suspect]
     Indication: DRUG USE FOR UNKNOWN INDICATION
     Dosage: TEXT:TWO TABLETS TWICE DAILY
     Route: 048
     Dates: start: 20090904, end: 20091024
  4. HEPTAMINOL [Suspect]
     Indication: DRUG USE FOR UNKNOWN INDICATION
     Dosage: TEXT:1 DF TID, 1 UNIT THREE TIMES DAILY 187.8
     Route: 048
     Dates: start: 20091013, end: 20091021
  5. SULFARLEM [Suspect]
     Indication: DRUG USE FOR UNKNOWN INDICATION
     Dosage: TEXT:25MG TID
     Route: 048
     Dates: start: 20091018, end: 20091026
  6. TERALITHE [Concomitant]
     Indication: DRUG USE FOR UNKNOWN INDICATION
     Dosage: TEXT:400MG
     Route: 048
  7. ANAFRANIL [Concomitant]
     Indication: DRUG USE FOR UNKNOWN INDICATION
     Dosage: TEXT:25MG TID
     Route: 048
     Dates: start: 20091013, end: 20091029
  8. FORLAX [Concomitant]
     Indication: DRUG USE FOR UNKNOWN INDICATION
     Dosage: TEXT:TWO UNITS THREE TIMES DAILY
     Route: 048
     Dates: start: 20091018
  9. TROSPIUM CHLORIDE [Concomitant]
     Indication: DRUG USE FOR UNKNOWN INDICATION
     Dosage: TEXT:UNKNOWN
     Route: 048
  10. RIVOTRIL [Concomitant]
     Indication: DRUG USE FOR UNKNOWN INDICATION
     Dosage: TEXT:4MG, 4 MG DAILY
     Route: 048
     Dates: start: 20090927
  11. HALDOL [Concomitant]
     Indication: DRUG USE FOR UNKNOWN INDICATION
     Dosage: TEXT:15MG
     Route: 048
  12. LEVOTHYROXINE SODIUM [Concomitant]
     Indication: DRUG USE FOR UNKNOWN INDICATION
     Dosage: TEXT:25MICROGRAM
     Route: 048

REACTIONS (7)
  - DYSPHAGIA [None]
  - DYSPNOEA [None]
  - PRURITUS [None]
  - PYREXIA [None]
  - RASH [None]
  - TOXIC SKIN ERUPTION [None]
  - URINARY TRACT INFECTION [None]
